FAERS Safety Report 20539992 (Version 1)
Quarter: 2022Q1

REPORT INFORMATION
  Report Type: Spontaneous
  Country: LV (occurrence: LV)
  Receive Date: 20220302
  Receipt Date: 20220302
  Transmission Date: 20220423
  Serious: Yes (Hospitalization)
  Sender: FDA-Public Use
  Company Number: LV-BAYER-2021A249159

PATIENT
  Age: 89 Year
  Sex: Female

DRUGS (1)
  1. XARELTO [Suspect]
     Active Substance: RIVAROXABAN
     Indication: Atrial fibrillation
     Dosage: 15 MG, QD
     Route: 048
     Dates: start: 20200819

REACTIONS (6)
  - Cerebral haemorrhage [Unknown]
  - Vision blurred [Unknown]
  - Hemianopia homonymous [Unknown]
  - Nystagmus [Unknown]
  - Palmomental reflex [Unknown]
  - Extensor plantar response [Unknown]

NARRATIVE: CASE EVENT DATE: 20211107
